FAERS Safety Report 5152438-5 (Version None)
Quarter: 2006Q4

REPORT INFORMATION
  Report Type: 
  Country: None (occurrence: None)
  Receive Date: 20061109
  Receipt Date: 20061018
  Transmission Date: 20070319
  Serious: Yes (Hospitalization, Other)
  Sender: FDA-Public Use
  Company Number: 2006134515

PATIENT
  Age: 70 Year
  Sex: Female

DRUGS (1)
  1. LIPITOR [Suspect]
     Indication: BLOOD CHOLESTEROL
     Dosage: 10 MG, 1 IN 2 D
     Dates: start: 20060101, end: 20060101

REACTIONS (9)
  - ARTHRALGIA [None]
  - BLINDNESS UNILATERAL [None]
  - CATARACT [None]
  - CHEST PAIN [None]
  - EMOTIONAL DISTRESS [None]
  - GLOBAL AMNESIA [None]
  - HEADACHE [None]
  - LOSS OF CONSCIOUSNESS [None]
  - MACULAR HOLE [None]
